FAERS Safety Report 5933424-1 (Version None)
Quarter: 2008Q4

REPORT INFORMATION
  Report Type: 
  Country: None (occurrence: None)
  Receive Date: 20081028
  Receipt Date: 20081020
  Transmission Date: 20090506
  Serious: Yes (Other)
  Sender: FDA-Public Use
  Company Number: DE-ALLERGAN-0813362US

PATIENT
  Age: 43 Year
  Sex: Male

DRUGS (1)
  1. BOTULINUM TOXIN TYPE A UNK [Suspect]
     Indication: OROMANDIBULAR DYSTONIA
     Route: 030

REACTIONS (2)
  - CENTRAL NERVOUS SYSTEM LESION [None]
  - CENTRAL NERVOUS SYSTEM NECROSIS [None]
